FAERS Safety Report 7002261-1 (Version None)
Quarter: 2010Q3

REPORT INFORMATION
  Report Type: 
  Country: None (occurrence: None)
  Receive Date: 20100920
  Receipt Date: 20091130
  Transmission Date: 20110219
  Serious: No
  Sender: FDA-Public Use
  Company Number: US-ASTRAZENECA-2009SE20153

PATIENT
  Age: 17275 Day
  Sex: Male

DRUGS (8)
  1. SEROQUEL [Suspect]
     Indication: BIPOLAR DISORDER
     Route: 048
     Dates: start: 20090301, end: 20090901
  2. SEROQUEL [Suspect]
     Route: 048
     Dates: start: 20090901, end: 20091001
  3. SEROQUEL [Suspect]
     Route: 048
     Dates: start: 20091001
  4. CLONAZEPAM [Concomitant]
  5. AVADAR [Concomitant]
  6. FLOMAX [Concomitant]
  7. LEXAPRO [Concomitant]
  8. DEPAKOTE [Concomitant]

REACTIONS (4)
  - DRUG INEFFECTIVE [None]
  - FATIGUE [None]
  - INSOMNIA [None]
  - SLEEP DISORDER [None]
